FAERS Safety Report 6930237-9 (Version None)
Quarter: 2010Q3

REPORT INFORMATION
  Report Type: 
  Country: None (occurrence: None)
  Receive Date: 20100818
  Receipt Date: 20100810
  Transmission Date: 20110219
  Serious: Yes (Other)
  Sender: FDA-Public Use
  Company Number: US-WYE-H16914810

PATIENT
  Sex: Female
  Weight: 67.65 kg

DRUGS (2)
  1. PREMARIN [Suspect]
     Indication: CONTRACEPTION
     Dosage: NOT PROVIDED
     Route: 048
     Dates: end: 19830101
  2. SIMVASTATIN [Concomitant]
     Indication: BLOOD CHOLESTEROL INCREASED

REACTIONS (2)
  - HYSTERECTOMY [None]
  - VAGINAL INFECTION [None]
